FAERS Safety Report 9681842 (Version 3)
Quarter: 2013Q4

REPORT INFORMATION
  Report Type: Spontaneous
  Country: JP (occurrence: JP)
  Receive Date: 20131111
  Receipt Date: 20131206
  Transmission Date: 20140711
  Serious: Yes (Life-Threatening, Other)
  Sender: FDA-Public Use
  Company Number: JP-PFIZER INC-2013315573

PATIENT
  Age: 80 Year
  Sex: Female

DRUGS (1)
  1. ZITHROMAC SR [Suspect]
     Indication: TOOTHACHE
     Dosage: 2 G, SINGLE
     Route: 048
     Dates: start: 20131031, end: 20131031

REACTIONS (8)
  - Convulsion [Recovered/Resolved]
  - Chills [Unknown]
  - Enterocolitis [Unknown]
  - Paralysis [Unknown]
  - Diarrhoea [Recovered/Resolved]
  - Abdominal pain [Recovered/Resolved]
  - Tremor [Recovered/Resolved]
  - Pyrexia [Unknown]
